FAERS Safety Report 9500928 (Version 2)
Quarter: 2013Q3

REPORT INFORMATION
  Report Type: Spontaneous
  Country: CH (occurrence: CH)
  Receive Date: 20130905
  Receipt Date: 20130905
  Transmission Date: 20140515
  Serious: Yes (Hospitalization)
  Sender: FDA-Public Use
  Company Number: PHHY2013CH079886

PATIENT
  Age: 48 Year
  Sex: Male
  Weight: 75 kg

DRUGS (2)
  1. TEGRETOL CR [Suspect]
     Indication: TRIGEMINAL NEURALGIA
     Dosage: 200 MG, UNK
     Route: 048
     Dates: start: 20130613, end: 20130613
  2. MUNDISAL [Concomitant]
     Dosage: UNK UKN, UNK

REACTIONS (6)
  - Swelling face [Recovered/Resolved]
  - Abscess jaw [Recovered/Resolved]
  - Paraesthesia [Recovered/Resolved]
  - Pain [Recovered/Resolved]
  - Oral mucosal erythema [Recovered/Resolved]
  - Headache [Recovered/Resolved]
